FAERS Safety Report 25176360 (Version 1)
Quarter: 2025Q2

REPORT INFORMATION
  Report Type: Spontaneous
  Country: US (occurrence: US)
  Receive Date: 20250409
  Receipt Date: 20250409
  Transmission Date: 20250717
  Serious: No
  Sender: SANOFI AVENTIS
  Company Number: US-SA-2025SA098822

PATIENT
  Age: 37 Year
  Sex: Female

DRUGS (1)
  1. DUPIXENT [Suspect]
     Active Substance: DUPILUMAB
     Indication: Asthma
     Dosage: 200 MG, QOW
     Route: 058
     Dates: start: 20250220

REACTIONS (7)
  - Early satiety [Unknown]
  - Constipation [Unknown]
  - Abdominal distension [Unknown]
  - Abdominal pain upper [Unknown]
  - Wheezing [Unknown]
  - Intervertebral disc protrusion [Unknown]
  - Back pain [Unknown]
